FAERS Safety Report 9607825 (Version 1)
Quarter: 2013Q4

REPORT INFORMATION
  Report Type: Report from Study
  Country: US (occurrence: US)
  Receive Date: 20131009
  Receipt Date: 20131009
  Transmission Date: 20140711
  Serious: Yes (Other)
  Sender: FDA-Public Use
  Company Number: US-PURDUE-USA-2013-0107031

PATIENT
  Age: 50 Year
  Sex: Female

DRUGS (1)
  1. OXYCONTIN (NDA 22-272) [Suspect]
     Indication: BACK PAIN
     Dosage: 80 MG, BID
     Route: 048

REACTIONS (4)
  - Road traffic accident [Unknown]
  - Pelvic fracture [Unknown]
  - Pain [Unknown]
  - Drug ineffective [Not Recovered/Not Resolved]
